FAERS Safety Report 15916882 (Version 2)
Quarter: 2019Q1

REPORT INFORMATION
  Report Type: Report from Study
  Country: None (occurrence: US)
  Receive Date: 20190205
  Receipt Date: 20190226
  Transmission Date: 20190417
  Serious: Yes (Other)
  Sender: FDA-Public Use
  Company Number: US-ABBVIE-19K-163-2645375-00

PATIENT
  Age: 69 Year
  Sex: Female
  Weight: 61.29 kg

DRUGS (2)
  1. VENCLEXTA [Suspect]
     Active Substance: VENETOCLAX
     Indication: CHRONIC LYMPHOCYTIC LEUKAEMIA
     Route: 048
     Dates: start: 20171117, end: 2018
  2. VENCLEXTA [Suspect]
     Active Substance: VENETOCLAX
     Route: 048
     Dates: start: 2018

REACTIONS (11)
  - Wound [Not Recovered/Not Resolved]
  - Impaired healing [Recovered/Resolved]
  - Wound complication [Recovered/Resolved]
  - Eye oedema [Not Recovered/Not Resolved]
  - Weight decreased [Recovering/Resolving]
  - Secretion discharge [Unknown]
  - Visual impairment [Not Recovered/Not Resolved]
  - Sinus disorder [Unknown]
  - Limb mass [Unknown]
  - Skin lesion [Not Recovered/Not Resolved]
  - Eye swelling [Unknown]

NARRATIVE: CASE EVENT DATE: 2018
